FAERS Safety Report 21419391 (Version 1)
Quarter: 2022Q4

REPORT INFORMATION
  Report Type: Spontaneous
  Country: US (occurrence: US)
  Receive Date: 20221006
  Receipt Date: 20221006
  Transmission Date: 20230113
  Serious: Yes (Death, Other)
  Sender: FDA-Public Use
  Company Number: US-TEVA-2022-US-2081358

PATIENT
  Age: 18 Year
  Sex: Male

DRUGS (2)
  1. OXYCODONE [Suspect]
     Active Substance: OXYCODONE
     Indication: Product used for unknown indication
     Route: 048
     Dates: start: 20191117, end: 20191117
  2. FENTANYL [Suspect]
     Active Substance: FENTANYL
     Indication: Product used for unknown indication
     Route: 048
     Dates: start: 20191117, end: 20191117

REACTIONS (4)
  - Overdose [Fatal]
  - Drug diversion [Unknown]
  - Loss of consciousness [Not Recovered/Not Resolved]
  - Drug abuse [Fatal]

NARRATIVE: CASE EVENT DATE: 20191117
